FAERS Safety Report 5065077-1 (Version None)
Quarter: 2006Q3

REPORT INFORMATION
  Report Type: 
  Country: None (occurrence: None)
  Receive Date: 20060706
  Receipt Date: 20060516
  Transmission Date: 20061208
  Serious: No
  Sender: FDA-Public Use
  Company Number: 200613210BWH

PATIENT
  Age: 58 Year
  Sex: Male

DRUGS (4)
  1. LEVITRA [Suspect]
     Dosage: 20 MG, TOTAL DAILY, ORAL
     Route: 048
     Dates: start: 20060416
  2. KLONOPIN [Concomitant]
  3. LEVOXYL [Concomitant]
  4. PROSCAR [Concomitant]

REACTIONS (1)
  - ANXIETY [None]
